FAERS Safety Report 9122585 (Version 2)
Quarter: 2013Q1

REPORT INFORMATION
  Report Type: Spontaneous
  Country: US (occurrence: None)
  Receive Date: 20130131
  Receipt Date: 20130308
  Transmission Date: 20140127
  Serious: Yes (Hospitalization)
  Sender: FDA-Public Use
  Company Number: 2013-019

PATIENT
  Age: 51 Year
  Sex: Female

DRUGS (1)
  1. PRIALT (ZICONOTIDE) INTRATHECAL INFUSION [Suspect]
     Dosage: 0.06 MCG, ONCE/HOUR, INTRATHECAL
     Route: 037
     Dates: start: 201203, end: 20121121

REACTIONS (7)
  - Leukocytosis [None]
  - Renal failure [None]
  - Rhabdomyolysis [None]
  - Mental status changes [None]
  - Nausea [None]
  - Vomiting [None]
  - Headache [None]
